FAERS Safety Report 22208559 (Version 2)
Quarter: 2023Q2

REPORT INFORMATION
  Report Type: Spontaneous
  Country: US (occurrence: US)
  Receive Date: 20230413
  Receipt Date: 20230417
  Transmission Date: 20230722
  Serious: No
  Sender: FDA-Public Use
  Company Number: US-BRISTOL-MYERS SQUIBB COMPANY-2023-052584

PATIENT
  Age: 75 Year
  Sex: Male
  Weight: 86.18 kg

DRUGS (1)
  1. REVLIMID [Suspect]
     Active Substance: LENALIDOMIDE
     Indication: Plasma cell myeloma
     Dosage: FREQUENCY:  PATIENT TOOK REVLIMID FOR 5 DAYS ON THE WEEK HE WAS SUPPOSED TO NOT TAKE REVLIMID
     Route: 048

REACTIONS (1)
  - Treatment noncompliance [Unknown]
